FAERS Safety Report 26212700 (Version 1)
Quarter: 2025Q4

REPORT INFORMATION
  Report Type: Report from Study
  Country: CO (occurrence: CO)
  Receive Date: 20251230
  Receipt Date: 20251230
  Transmission Date: 20260118
  Serious: Yes (Other)
  Sender: LEO PHARM
  Company Number: CO-LEO Pharma-385311

PATIENT
  Age: 23 Year
  Sex: Female

DRUGS (1)
  1. TACLONEX [Suspect]
     Active Substance: BETAMETHASONE DIPROPIONATE\CALCIPOTRIENE\CALCIPOTRIENE HYDRATE
     Indication: Psoriasis
     Route: 003
     Dates: start: 20251118, end: 20251218

REACTIONS (3)
  - Therapy interrupted [Not Recovered/Not Resolved]
  - Biopsy [Not Recovered/Not Resolved]
  - Product prescribing issue [Not Recovered/Not Resolved]

NARRATIVE: CASE EVENT DATE: 20251219
